FAERS Safety Report 23705958 (Version 1)
Quarter: 2024Q2

REPORT INFORMATION
  Report Type: Report from Study
  Country: NL (occurrence: NL)
  Receive Date: 20240404
  Receipt Date: 20240404
  Transmission Date: 20240716
  Serious: Yes (Death)
  Sender: FDA-Public Use
  Company Number: NL-ABBVIE-5705373

PATIENT
  Age: 59 Year
  Sex: Male

DRUGS (4)
  1. CARBIDOPA\LEVODOPA [Suspect]
     Active Substance: CARBIDOPA\LEVODOPA
     Indication: Parkinson^s disease
     Dosage: REMAINS AT 16 HOURS
     Route: 050
     Dates: start: 20190401
  2. CARBIDOPA\LEVODOPA [Suspect]
     Active Substance: CARBIDOPA\LEVODOPA
     Dosage: MD: 7.0ML, CD: 7.3ML/H, ED: 3.50ML?REMAINS AT 16 HOURS
     Route: 050
     Dates: start: 20230915, end: 20240331
  3. CARBIDOPA\LEVODOPA [Suspect]
     Active Substance: CARBIDOPA\LEVODOPA
     Dosage: MD: 7.0ML, CD: 7.3ML/H, ED: 3.50ML?REMAINS AT 16 HOURS
     Route: 050
     Dates: start: 20230515, end: 20230810
  4. CARBIDOPA\LEVODOPA [Suspect]
     Active Substance: CARBIDOPA\LEVODOPA
     Dosage: MD: 7.0ML, CD: 7.3ML/H, ED: 3.50ML?REMAINS AT 16 HOURS
     Route: 050
     Dates: start: 20230810, end: 20230915

REACTIONS (1)
  - Myocardial infarction [Fatal]
